FAERS Safety Report 23740970 (Version 1)
Quarter: 2024Q2

REPORT INFORMATION
  Report Type: Spontaneous
  Country: US (occurrence: US)
  Receive Date: 20240415
  Receipt Date: 20240415
  Transmission Date: 20240716
  Serious: No
  Sender: FDA-Public Use
  Company Number: US-SOLA PHARMACEUTICALS-20240200002

PATIENT
  Age: 69 Year
  Sex: Female
  Weight: 65.306 kg

DRUGS (2)
  1. CYANOCOBALAMIN [Suspect]
     Active Substance: CYANOCOBALAMIN
     Indication: Vitamin B complex deficiency
     Dosage: 1000 MICROGRAM, SINGLE (ONCE A WEEK)
     Route: 065
     Dates: start: 202402
  2. ARMOUR THYROID [Concomitant]
     Active Substance: THYROID, PORCINE
     Indication: Hypothyroidism
     Dosage: 30 MILLIGRAM, BID
     Route: 065

REACTIONS (1)
  - Wrong technique in product usage process [Unknown]

NARRATIVE: CASE EVENT DATE: 20240201
